FAERS Safety Report 5726769-1 (Version None)
Quarter: 2008Q2

REPORT INFORMATION
  Report Type: 
  Country: None (occurrence: None)
  Receive Date: 20080502
  Receipt Date: 20080423
  Transmission Date: 20081010
  Serious: Yes (Congenital Anomaly, Other)
  Sender: FDA-Public Use
  Company Number: GB-ABBOTT-05P-167-0311331-00

PATIENT
  Sex: Male

DRUGS (1)
  1. VALPROIC ACID [Suspect]
     Indication: DRUG EXPOSURE DURING PREGNANCY
     Route: 064

REACTIONS (30)
  - ABNORMAL BEHAVIOUR [None]
  - AGGRESSION [None]
  - ASTHMA [None]
  - ASTIGMATISM [None]
  - CONGENITAL ANOMALY [None]
  - CONGENITAL FOOT MALFORMATION [None]
  - CONGENITAL NOSE MALFORMATION [None]
  - CONVULSION [None]
  - DEVELOPMENTAL DELAY [None]
  - DISTURBANCE IN ATTENTION [None]
  - DRUG EXPOSURE DURING PREGNANCY [None]
  - DYSMORPHISM [None]
  - EAR MALFORMATION [None]
  - FEELING JITTERY [None]
  - FINE MOTOR DELAY [None]
  - FOETAL ANTICONVULSANT SYNDROME [None]
  - HAIR GROWTH ABNORMAL [None]
  - HEAD DEFORMITY [None]
  - HYPOKINESIA [None]
  - INJURY [None]
  - INTELLIGENCE TEST ABNORMAL [None]
  - LIP DISORDER [None]
  - MELANOCYTIC NAEVUS [None]
  - MICROCEPHALY [None]
  - PSYCHOMOTOR HYPERACTIVITY [None]
  - RETRACTED NIPPLE [None]
  - SLEEP DISORDER [None]
  - SPEECH DISORDER DEVELOPMENTAL [None]
  - STRABISMUS [None]
  - VISUAL DISTURBANCE [None]
